FAERS Safety Report 12331524 (Version 1)
Quarter: 2016Q2

REPORT INFORMATION
  Report Type: Spontaneous
  Country: US (occurrence: US)
  Receive Date: 20160504
  Receipt Date: 20160504
  Transmission Date: 20160815
  Serious: No
  Sender: FDA-Public Use
  Company Number: US-BAYER-2016-025507

PATIENT
  Age: 69 Year
  Sex: Female
  Weight: 52.15 kg

DRUGS (7)
  1. TRUBIOTICS [Suspect]
     Active Substance: BIFIDOBACTERIUM LONGUM\LACTOBACILLUS ACIDOPHILUS
     Indication: ABDOMINAL DISCOMFORT
     Dosage: 1 DF, BID WITH FOOD
     Route: 048
     Dates: start: 2015
  2. MAGNESIUM [Concomitant]
     Active Substance: MAGNESIUM
     Dosage: UNK
  3. FOLIC ACID. [Concomitant]
     Active Substance: FOLIC ACID
     Dosage: UNK
  4. TRUBIOTICS [Suspect]
     Active Substance: BIFIDOBACTERIUM LONGUM\LACTOBACILLUS ACIDOPHILUS
     Indication: ABDOMINAL DISCOMFORT
     Dosage: 1 DF, QD WITH FOOD
     Route: 048
     Dates: start: 2014
  5. FIBER [Concomitant]
     Active Substance: PSYLLIUM HUSK
     Dosage: UNK
  6. MIRALAX [Suspect]
     Active Substance: POLYETHYLENE GLYCOL 3350
     Indication: CONSTIPATION
     Dosage: ( HALF DOSE EVERY MORNING AND FULL DOSE EVERY NIGHT), BID
  7. MIRALAX [Suspect]
     Active Substance: POLYETHYLENE GLYCOL 3350
     Indication: IRRITABLE BOWEL SYNDROME

REACTIONS (4)
  - Off label use [None]
  - Product use issue [None]
  - Flatulence [None]
  - Drug ineffective [None]
